FAERS Safety Report 5057641-0 (Version None)
Quarter: 2006Q3

REPORT INFORMATION
  Report Type: 
  Country: None (occurrence: None)
  Receive Date: 20060721
  Receipt Date: 20060106
  Transmission Date: 20061208
  Serious: No
  Sender: FDA-Public Use
  Company Number: US-GLAXOSMITHKLINE-A0588160A

PATIENT
  Age: 75 Year
  Sex: Male

DRUGS (7)
  1. AVANDIA [Suspect]
     Dosage: 4MG PER DAY
     Route: 048
     Dates: start: 20041001
  2. DIAZEPAM [Concomitant]
  3. BENICAR [Concomitant]
  4. VYTORIN [Concomitant]
  5. TRIAMTERENE AND HYDROCHLOROTHIAZIDE [Concomitant]
  6. ADVAIR DISKUS 100/50 [Concomitant]
  7. SPIRIVA [Concomitant]

REACTIONS (2)
  - IMPULSIVE BEHAVIOUR [None]
  - LACRIMATION INCREASED [None]
